FAERS Safety Report 9061765 (Version 1)
Quarter: 2013Q1

REPORT INFORMATION
  Report Type: Spontaneous
  Country: US (occurrence: None)
  Receive Date: 20130118
  Receipt Date: 20130118
  Transmission Date: 20140127
  Serious: Yes (Disabling, Other)
  Sender: FDA-Public Use
  Company Number: NGX_01555_2013

PATIENT
  Sex: Male

DRUGS (2)
  1. QUTENZA (CAPSAICIN) PATCH 8 % [Suspect]
     Indication: PAIN
     Dosage: (DF [PATCH])
     Route: 061
  2. LIDOCAINE [Concomitant]

REACTIONS (6)
  - Insomnia [None]
  - Application site pain [None]
  - Blood pressure increased [None]
  - Product adhesion issue [None]
  - Drug ineffective [None]
  - Wrong technique in drug usage process [None]
